FAERS Safety Report 14137662 (Version 1)
Quarter: 2017Q4

REPORT INFORMATION
  Report Type: Spontaneous
  Country: US (occurrence: US)
  Receive Date: 20171027
  Receipt Date: 20171027
  Transmission Date: 20180321
  Serious: No
  Sender: FDA-Public Use
  Company Number: US-DRREDDYS-USA/USA/16/0085238

PATIENT
  Age: 38 Year
  Sex: Male
  Weight: 72.57 kg

DRUGS (1)
  1. RANITIDINE. [Suspect]
     Active Substance: RANITIDINE
     Indication: DYSPEPSIA
     Route: 048
     Dates: start: 201605

REACTIONS (2)
  - Headache [Unknown]
  - Drug screen false positive [Unknown]

NARRATIVE: CASE EVENT DATE: 20161125
